FAERS Safety Report 12187432 (Version 2)
Quarter: 2016Q1

REPORT INFORMATION
  Report Type: Spontaneous
  Country: JP (occurrence: JP)
  Receive Date: 20160317
  Receipt Date: 20160329
  Transmission Date: 20160526
  Serious: Yes (Life-Threatening)
  Sender: FDA-Public Use
  Company Number: JP-BIOCRYST PHARMACEUTICALS, INC.-2016BCR00120

PATIENT
  Age: 36 Year
  Sex: Female

DRUGS (4)
  1. MEIACT [Concomitant]
     Active Substance: CEFDITOREN PIVOXIL
     Indication: STREPTOCOCCAL INFECTION
     Dosage: 400 MG, 1X/DAY
     Route: 048
     Dates: start: 20160303, end: 20160307
  2. RAPIACTA [Suspect]
     Active Substance: PERAMIVIR
     Indication: INFLUENZA
     Dosage: 300 MG, UNK
     Route: 042
     Dates: start: 20160304, end: 20160304
  3. CALONAL [Concomitant]
     Active Substance: ACETAMINOPHEN
     Indication: STREPTOCOCCAL INFECTION
     Dosage: UNK
     Route: 048
     Dates: start: 20160303
  4. ALLELOCK [Concomitant]
     Active Substance: OLOPATADINE HYDROCHLORIDE
     Dosage: 15 MG, 1X/DAY
     Route: 048
     Dates: start: 20160303, end: 20160309

REACTIONS (1)
  - Anaphylactic shock [Recovering/Resolving]

NARRATIVE: CASE EVENT DATE: 20160304
